FAERS Safety Report 7915111-3 (Version None)
Quarter: 2011Q4

REPORT INFORMATION
  Report Type: 
  Country: None (occurrence: None)
  Receive Date: 20111115
  Receipt Date: 20111110
  Transmission Date: 20120403
  Serious: Yes (Death)
  Sender: FDA-Public Use
  Company Number: JP-GENZYME-THYM-1002896

PATIENT
  Age: 77 Year
  Sex: Male
  Weight: 58 kg

DRUGS (1)
  1. THYMOGLOBULIN [Suspect]
     Indication: APLASTIC ANAEMIA
     Dosage: 2.5 MG/KG, QD
     Route: 042
     Dates: start: 20110825, end: 20110829

REACTIONS (2)
  - RESPIRATORY FAILURE [None]
  - PNEUMONIA [None]
